FAERS Safety Report 4623091-1 (Version None)
Quarter: 2005Q1

REPORT INFORMATION
  Report Type: 
  Country: None (occurrence: None)
  Receive Date: 20050328
  Receipt Date: 20050328
  Transmission Date: 20050727
  Serious: Yes (Hospitalization)
  Sender: FDA-Public Use
  Company Number: None

PATIENT
  Age: 27 Year
  Sex: Female
  Weight: 72.5755 kg

DRUGS (3)
  1. EFFEXOR XR [Suspect]
     Indication: BIPOLAR DISORDER
     Dosage: 150MG    ORAL
     Route: 048
     Dates: start: 20000915, end: 20010420
  2. EFFEXOR XR [Suspect]
     Indication: DEPRESSION
     Dosage: 150MG    ORAL
     Route: 048
     Dates: start: 20000915, end: 20010420
  3. ZYPREXA [Concomitant]

REACTIONS (6)
  - DEPRESSION [None]
  - DIZZINESS [None]
  - NAUSEA [None]
  - NERVOUS SYSTEM DISORDER [None]
  - SENSORY DISTURBANCE [None]
  - SUICIDAL IDEATION [None]
